FAERS Safety Report 5624388-9 (Version None)
Quarter: 2008Q1

REPORT INFORMATION
  Report Type: 
  Country: None (occurrence: None)
  Receive Date: 20080213
  Receipt Date: 20080208
  Transmission Date: 20080703
  Serious: Yes (Death, Hospitalization)
  Sender: FDA-Public Use
  Company Number: PT-BAXTER-2008BH001182

PATIENT
  Sex: Male

DRUGS (3)
  1. EXTRANEAL [Suspect]
     Indication: PERITONEAL DIALYSIS
     Dosage: DOSE UNIT:UNKNOWN
     Route: 033
  2. PHYSIOSOL IN PLASTIC CONTAINER [Suspect]
     Indication: PERITONEAL DIALYSIS
     Dosage: DOSE UNIT:UNKNOWN
     Route: 033
  3. NUTRINEAL [Suspect]
     Indication: PERITONEAL DIALYSIS
     Dosage: DOSE UNIT:UNKNOWN
     Route: 033

REACTIONS (1)
  - ISCHAEMIC CARDIOMYOPATHY [None]
